FAERS Safety Report 9865105 (Version 2)
Quarter: 2014Q1

REPORT INFORMATION
  Report Type: Report from Study
  Country: US (occurrence: US)
  Receive Date: 20140203
  Receipt Date: 20140314
  Transmission Date: 20141002
  Serious: Yes (Death, Other)
  Sender: FDA-Public Use
  Company Number: US-GILEAD-2014-0093294

PATIENT
  Sex: Male

DRUGS (12)
  1. AZTREONAM LYSINE [Suspect]
     Indication: CYSTIC FIBROSIS
     Dosage: 75 MG, UNK
     Route: 055
     Dates: start: 20130313, end: 2013
  2. IBUPROFEN W/PARACETAMOL [Concomitant]
     Route: 048
  3. XANAX [Concomitant]
     Route: 048
  4. METHADONE [Concomitant]
     Route: 048
  5. PULMOZYME [Concomitant]
     Route: 055
  6. COMBIVENT [Concomitant]
     Route: 055
  7. ZENPEP [Concomitant]
     Route: 048
  8. TOBRAMYCIN [Concomitant]
     Route: 055
  9. ALBUTEROL                          /00139501/ [Concomitant]
     Route: 055
  10. ZITHROMAX [Concomitant]
     Route: 048
  11. AQUADEKS                           /07679501/ [Concomitant]
     Route: 048
  12. MARINOL                            /00897601/ [Concomitant]

REACTIONS (2)
  - Cystic fibrosis [Fatal]
  - Bronchospasm [Unknown]
